FAERS Safety Report 24282460 (Version 1)
Quarter: 2024Q3

REPORT INFORMATION
  Report Type: Spontaneous
  Country: US (occurrence: None)
  Receive Date: 20240903
  Receipt Date: 20240903
  Transmission Date: 20241016
  Serious: Yes (Hospitalization)
  Sender: Public
  Company Number: None

PATIENT
  Age: 76 Year
  Sex: Female

DRUGS (1)
  1. TYMLOS [Suspect]
     Active Substance: ABALOPARATIDE
     Indication: Osteoporosis
     Dosage: 80 UG DAILY SUBCUTANEOUS ?
     Route: 058
     Dates: start: 20231117

REACTIONS (4)
  - Electrolyte imbalance [None]
  - Dizziness [None]
  - Fatigue [None]
  - Disorientation [None]

NARRATIVE: CASE EVENT DATE: 20240823
